FAERS Safety Report 5148218-7 (Version None)
Quarter: 2006Q4

REPORT INFORMATION
  Report Type: 
  Country: None (occurrence: None)
  Receive Date: 20060918
  Receipt Date: 20060222
  Transmission Date: 20070319
  Serious: Yes (Other)
  Sender: FDA-Public Use
  Company Number: US-JNJFOC-20060105512

PATIENT
  Age: 49 Year
  Sex: Female
  Weight: 88.4514 kg

DRUGS (5)
  1. TOPAMAX [Suspect]
     Indication: MIGRAINE
     Dosage: SEE IMAGE
     Route: 048
     Dates: start: 19980101, end: 20020101
  2. TOPAMAX [Suspect]
     Indication: MIGRAINE
     Dosage: SEE IMAGE
     Route: 048
     Dates: start: 20020101, end: 20020101
  3. TOPAMAX [Suspect]
     Indication: MIGRAINE
     Dosage: SEE IMAGE
     Route: 048
     Dates: start: 20020101, end: 20030101
  4. TOPAMAX [Suspect]
     Indication: MIGRAINE
     Dosage: SEE IMAGE
     Route: 048
     Dates: end: 20050101
  5. CELEXA [Concomitant]

REACTIONS (10)
  - BRADYPHRENIA [None]
  - CONVERSION DISORDER [None]
  - CONVULSION [None]
  - DRUG INEFFECTIVE [None]
  - DYSPHEMIA [None]
  - MALAISE [None]
  - NEPHROLITHIASIS [None]
  - PARAESTHESIA [None]
  - SLEEP DISORDER [None]
  - WEIGHT DECREASED [None]
